FAERS Safety Report 4365067-8 (Version None)
Quarter: 2004Q2

REPORT INFORMATION
  Report Type: 
  Country: None (occurrence: None)
  Receive Date: 20040521
  Receipt Date: 20040513
  Transmission Date: 20050107
  Serious: Yes (Death)
  Sender: FDA-Public Use
  Company Number: CA-JNJFOC-20031103365

PATIENT
  Age: 51 Year
  Sex: Female

DRUGS (4)
  1. DOXORUBICIN HCL [Suspect]
     Indication: OVARIAN CANCER
     Dosage: 40 MG/M2, 1 IN 4 WEEKS, INTRAVENOUS
     Route: 042
     Dates: start: 20030908, end: 20031008
  2. DEXAMETHASONE [Concomitant]
  3. PROCHLORPERAZINE [Concomitant]
  4. BENADRYL (DIPHENHYDRAMINE HYDROCHLORIDE) INJECTION [Concomitant]

REACTIONS (4)
  - ATELECTASIS [None]
  - DISEASE PROGRESSION [None]
  - MASS [None]
  - PLEURAL EFFUSION [None]
